FAERS Safety Report 7873960-4 (Version None)
Quarter: 2011Q4

REPORT INFORMATION
  Report Type: 
  Country: None (occurrence: None)
  Receive Date: 20111030
  Receipt Date: 20110512
  Transmission Date: 20120403
  Serious: No
  Sender: FDA-Public Use
  Company Number: US-AMGEN-USASP2011024736

PATIENT
  Age: 49 Year
  Sex: Female
  Weight: 104 kg

DRUGS (10)
  1. LORATADINE [Concomitant]
     Dosage: 10 MG, UNK
  2. FLONASE [Concomitant]
     Dosage: 0.05 %, UNK
  3. PULMICORT [Concomitant]
     Dosage: 200 MUG, UNK
  4. FOLIC ACID [Concomitant]
     Dosage: 1 MG, UNK
  5. CALCIUM +D [Concomitant]
     Dosage: UNK
  6. ENBREL [Suspect]
     Indication: PRODUCT USED FOR UNKNOWN INDICATION
     Dosage: 50 MG, QWK
     Route: 058
  7. LEUCOVORIN CALCIUM [Concomitant]
     Dosage: 10 MG, UNK
  8. LIDODERM [Concomitant]
     Dosage: 5 %, UNK
  9. METHOTREXATE [Concomitant]
     Dosage: 2.5 MG, UNK
  10. ALBUTEROL [Concomitant]
     Dosage: 90 MUG, UNK

REACTIONS (1)
  - BONE LESION [None]
